FAERS Safety Report 12397642 (Version 1)
Quarter: 2016Q2

REPORT INFORMATION
  Report Type: Spontaneous
  Country: US (occurrence: US)
  Receive Date: 20160524
  Receipt Date: 20160524
  Transmission Date: 20160815
  Serious: Yes (Death, Life-Threatening, Other)
  Sender: FDA-Public Use
  Company Number: PHEH2016US012553

PATIENT
  Age: 71 Year
  Sex: Male

DRUGS (2)
  1. ENTRESTO [Suspect]
     Active Substance: SACUBITRIL\VALSARTAN
     Dosage: 97/103 MG, BID
     Route: 048
     Dates: end: 20160517
  2. ENTRESTO [Suspect]
     Active Substance: SACUBITRIL\VALSARTAN
     Indication: LEFT VENTRICULAR FAILURE
     Dosage: 49/51 UNK, UNK
     Route: 048
     Dates: start: 20160413

REACTIONS (7)
  - Blood urea increased [Unknown]
  - Sudden cardiac death [Fatal]
  - Aspartate aminotransferase increased [Unknown]
  - Blood creatinine increased [Unknown]
  - Weight increased [Unknown]
  - Peripheral coldness [Unknown]
  - Hypotension [Unknown]

NARRATIVE: CASE EVENT DATE: 20160518
